FAERS Safety Report 17324698 (Version 1)
Quarter: 2020Q1

REPORT INFORMATION
  Report Type: Spontaneous
  Country: US (occurrence: US)
  Receive Date: 20200127
  Receipt Date: 20200127
  Transmission Date: 20200409
  Serious: Yes (Hospitalization, Other)
  Sender: FDA-Public Use
  Company Number: US-GLAXOSMITHKLINE-US2020012020

PATIENT
  Age: 79 Year
  Sex: Male

DRUGS (5)
  1. FLONASE ALLERGY RELIEF [Suspect]
     Active Substance: FLUTICASONE PROPIONATE
     Indication: PRODUCT USED FOR UNKNOWN INDICATION
     Dosage: UNK
  2. OFEV [Suspect]
     Active Substance: NINTEDANIB
     Dosage: 150 MG, BID
  3. OFEV [Suspect]
     Active Substance: NINTEDANIB
     Dosage: 150 MG, BID
  4. OFEV [Suspect]
     Active Substance: NINTEDANIB
     Indication: IDIOPATHIC PULMONARY FIBROSIS
     Dosage: 150 MG, BID
  5. OFEV [Suspect]
     Active Substance: NINTEDANIB
     Dosage: 150 MG, BID

REACTIONS (8)
  - Bacterial infection [Unknown]
  - Septic shock [Unknown]
  - Blindness [Recovered/Resolved]
  - Abdominal discomfort [Unknown]
  - Productive cough [Unknown]
  - Head discomfort [Unknown]
  - Dyspnoea [Recovered/Resolved]
  - Dyspnoea exertional [Unknown]
